FAERS Safety Report 7647231-5 (Version None)
Quarter: 2011Q3

REPORT INFORMATION
  Report Type: 
  Country: None (occurrence: None)
  Receive Date: 20110726
  Receipt Date: 20110722
  Transmission Date: 20111222
  Serious: Yes (Death)
  Sender: FDA-Public Use
  Company Number: 2011SP034488

PATIENT
  Age: 53 Year
  Sex: Female

DRUGS (2)
  1. RIBAVIRIN [Suspect]
     Indication: HEPATITIS C
     Dosage: 800 MG;QD
     Dates: start: 20080903, end: 20091027
  2. PEG-INTRON [Suspect]
     Indication: HEPATITIS C
     Dosage: 30 MCG;QW
     Dates: start: 20080903, end: 20091021

REACTIONS (18)
  - HYPOXIA [None]
  - CONTINUOUS HAEMODIAFILTRATION [None]
  - RESPIRATORY DISTRESS [None]
  - LEUKOPENIA [None]
  - SEPSIS [None]
  - CYANOSIS [None]
  - OLIGURIA [None]
  - SINUS TACHYCARDIA [None]
  - HYPERLACTACIDAEMIA [None]
  - RALES [None]
  - MULTI-ORGAN FAILURE [None]
  - LUNG DISORDER [None]
  - INFLAMMATION [None]
  - PNEUMOCOCCAL INFECTION [None]
  - DRUG INEFFECTIVE [None]
  - TACHYPNOEA [None]
  - SHOCK [None]
  - GENERAL PHYSICAL HEALTH DETERIORATION [None]
